FAERS Safety Report 11092992 (Version 1)
Quarter: 2015Q2

REPORT INFORMATION
  Report Type: Spontaneous
  Country: US (occurrence: None)
  Receive Date: 20150428
  Receipt Date: 20150428
  Transmission Date: 20150821
  Serious: Yes (Other)
  Sender: FDA-Public Use
  Company Number: 2014VER00371

PATIENT
  Age: 34 Year
  Sex: Male
  Weight: 65 kg

DRUGS (8)
  1. MYORISAN [Concomitant]
     Active Substance: ISOTRETINOIN
     Indication: ACNE CYSTIC
     Route: 048
     Dates: start: 20141107, end: 20141216
  2. POTASSIUM IODIDE [Concomitant]
     Active Substance: POTASSIUM IODIDE
  3. VITAMIN C [Concomitant]
     Active Substance: ASCORBIC ACID
  4. MULTIVITAMIN [Concomitant]
     Active Substance: VITAMINS
  5. MYORISAN [Suspect]
     Active Substance: ISOTRETINOIN
     Indication: ACNE CYSTIC
     Dates: start: 20141107, end: 20141216
  6. ASACOL [Concomitant]
     Active Substance: MESALAMINE
  7. PROPECIAL [Concomitant]
  8. VITAMIN D [Concomitant]
     Active Substance: CHOLECALCIFEROL

REACTIONS (2)
  - Aspartate aminotransferase increased [None]
  - Alanine aminotransferase increased [None]

NARRATIVE: CASE EVENT DATE: 20141103
